FAERS Safety Report 4480791-4 (Version None)
Quarter: 2004Q4

REPORT INFORMATION
  Report Type: 
  Country: None (occurrence: None)
  Receive Date: 20041019
  Receipt Date: 20041011
  Transmission Date: 20050328
  Serious: Yes (Other)
  Sender: FDA-Public Use
  Company Number: 2004238196US

PATIENT
  Age: 66 Year
  Sex: Female

DRUGS (2)
  1. PROVERA [Suspect]
     Dates: start: 19840101, end: 19910101
  2. PREMARIN [Suspect]
     Dates: start: 19850101, end: 19910101

REACTIONS (1)
  - BREAST CANCER FEMALE [None]
